FAERS Safety Report 14146178 (Version 2)
Quarter: 2017Q4

REPORT INFORMATION
  Report Type: Spontaneous
  Country: AU (occurrence: AU)
  Receive Date: 20171031
  Receipt Date: 20171031
  Transmission Date: 20180321
  Serious: Yes (Other)
  Sender: FDA-Public Use
  Company Number: PHHY2017AU153245

PATIENT
  Sex: Female

DRUGS (9)
  1. DOCETAXEL. [Suspect]
     Active Substance: DOCETAXEL
     Indication: INVASIVE BREAST CARCINOMA
     Route: 065
  2. PACLITAXEL. [Suspect]
     Active Substance: PACLITAXEL
     Indication: INVASIVE BREAST CARCINOMA
     Dosage: 9 DOSES, QW
     Route: 065
  3. EPIRUBICIN [Suspect]
     Active Substance: EPIRUBICIN
     Indication: INVASIVE BREAST CARCINOMA
     Dosage: 4 CYCLES
     Route: 065
  4. TAMOXIFEN [Suspect]
     Active Substance: TAMOXIFEN
     Indication: INVASIVE BREAST CARCINOMA
     Route: 065
     Dates: start: 201510
  5. FEMARA [Suspect]
     Active Substance: LETROZOLE
     Indication: INVASIVE BREAST CARCINOMA
     Dosage: UNK
     Route: 065
     Dates: start: 201507, end: 201510
  6. FEMARA [Suspect]
     Active Substance: LETROZOLE
     Dosage: UNK
     Route: 065
     Dates: start: 20171011
  7. 5-FLUOROURACIL [Suspect]
     Active Substance: FLUOROURACIL
     Indication: INVASIVE BREAST CARCINOMA
     Dosage: 4 CYCLES
     Route: 065
  8. CYCLOPHOSPHAMIDE. [Suspect]
     Active Substance: CYCLOPHOSPHAMIDE
     Indication: INVASIVE BREAST CARCINOMA
     Dosage: 4 CYCLES
     Route: 065
  9. ZOLADEX [Suspect]
     Active Substance: GOSERELIN ACETATE
     Indication: INVASIVE BREAST CARCINOMA
     Route: 065

REACTIONS (15)
  - Anion gap increased [Unknown]
  - Blood alkaline phosphatase increased [Not Recovered/Not Resolved]
  - Carbohydrate antigen 15-3 increased [Not Recovered/Not Resolved]
  - Blood bilirubin increased [Recovered/Resolved]
  - Arthralgia [Unknown]
  - Vitamin D decreased [Recovered/Resolved]
  - Metastases to liver [Unknown]
  - Carcinoembryonic antigen increased [Not Recovered/Not Resolved]
  - Gamma-glutamyltransferase increased [Not Recovered/Not Resolved]
  - Breast cancer metastatic [Unknown]
  - Back pain [Unknown]
  - Aspartate aminotransferase increased [Not Recovered/Not Resolved]
  - Red blood cell sedimentation rate increased [Unknown]
  - Metastases to bone [Unknown]
  - Breast cancer recurrent [Unknown]
